FAERS Safety Report 5967019-0 (Version None)
Quarter: 2008Q4

REPORT INFORMATION
  Report Type: 
  Country: None (occurrence: None)
  Receive Date: 20081125
  Receipt Date: 20081111
  Transmission Date: 20090506
  Serious: Yes (Other)
  Sender: FDA-Public Use
  Company Number: US-ELI_LILLY_AND_COMPANY-US200811002471

PATIENT
  Sex: Female

DRUGS (1)
  1. FORTEO [Suspect]
     Dosage: UNK, UNK
     Dates: start: 20080101

REACTIONS (5)
  - BONE EROSION [None]
  - FEELING ABNORMAL [None]
  - GINGIVAL EROSION [None]
  - STOMATITIS [None]
  - TOOTH DISORDER [None]
